FAERS Safety Report 23906046 (Version 1)
Quarter: 2024Q2

REPORT INFORMATION
  Report Type: Spontaneous
  Country: US (occurrence: None)
  Receive Date: 20240527
  Receipt Date: 20240527
  Transmission Date: 20240715
  Serious: Yes (Death, Hospitalization, Other)
  Sender: FDA-Public Use
  Company Number: 2024A122431

PATIENT
  Age: 61 Year
  Sex: Male
  Weight: 115.2 kg

DRUGS (28)
  1. SEROQUEL [Suspect]
     Active Substance: QUETIAPINE FUMARATE
     Indication: Adenocarcinoma
     Route: 048
     Dates: start: 20200106
  2. BRILINTA [Suspect]
     Active Substance: TICAGRELOR
     Indication: Adenocarcinoma
     Route: 048
     Dates: start: 20210107, end: 20230629
  3. OLAPARIB [Suspect]
     Active Substance: OLAPARIB
     Indication: Adenocarcinoma
     Route: 048
     Dates: start: 20200711, end: 20210728
  4. CABAZITAXEL [Suspect]
     Active Substance: CABAZITAXEL
     Indication: Adenocarcinoma
     Dates: start: 20230601, end: 20230727
  5. LEXAPRO [Concomitant]
     Active Substance: ESCITALOPRAM OXALATE
     Dates: start: 20190529
  6. COREG [Concomitant]
     Active Substance: CARVEDILOL
     Dates: start: 20201222
  7. NORVASC [Concomitant]
     Active Substance: AMLODIPINE BESYLATE
     Dates: start: 20140107, end: 20230629
  8. PRINIVIL [Concomitant]
     Active Substance: LISINOPRIL
     Dates: start: 20180419
  9. LIPITOR [Concomitant]
     Active Substance: ATORVASTATIN CALCIUM
     Dates: start: 20150203
  10. ASPIRIN [Concomitant]
     Active Substance: ASPIRIN
     Dates: start: 20210107
  11. PREDNISONE [Concomitant]
     Active Substance: PREDNISONE
     Dates: start: 20230601
  12. MORPHINE [Concomitant]
     Active Substance: MORPHINE
     Dates: start: 20180504
  13. NAPROSYN [Concomitant]
     Active Substance: NAPROXEN
     Dates: start: 20170814, end: 20230629
  14. TYLENOL [Concomitant]
     Active Substance: ACETAMINOPHEN
     Dates: start: 20230629, end: 20230703
  15. IMODIUM [Concomitant]
     Active Substance: LOPERAMIDE HYDROCHLORIDE
     Dates: start: 20150929, end: 20230703
  16. ZOFRAN [Concomitant]
     Active Substance: ONDANSETRON HYDROCHLORIDE
     Dates: start: 20230622, end: 20230703
  17. REGLAN [Concomitant]
     Active Substance: METOCLOPRAMIDE HYDROCHLORIDE
     Dates: start: 20230630, end: 20230702
  18. SENOKOT [Concomitant]
     Active Substance: SENNOSIDES
     Dates: start: 20210524
  19. VITAMIN B1 [Concomitant]
     Active Substance: THIAMINE HYDROCHLORIDE
     Dates: start: 20201222
  20. CALCIUM CARBONATE [Concomitant]
     Active Substance: CALCIUM CARBONATE
     Dates: start: 20140311
  21. FOLIC ACID [Concomitant]
     Active Substance: FOLIC ACID
     Dates: start: 20140721
  22. ZINC COMPLEX [Concomitant]
     Dates: start: 20140721
  23. VITAMIN D3 [Concomitant]
     Active Substance: CHOLECALCIFEROL
     Dates: start: 20140721
  24. RIVAROXABAN [Concomitant]
     Active Substance: RIVAROXABAN
     Dates: start: 20230703
  25. ENOXAPARIN [Concomitant]
     Active Substance: ENOXAPARIN
     Dates: start: 20230629, end: 20230703
  26. ZOSTRIX ORIGINAL STRENGTH [Concomitant]
     Active Substance: CAPSAICIN
     Dates: start: 20230701
  27. LIDODERM [Concomitant]
     Active Substance: LIDOCAINE
     Dates: start: 20230601
  28. SODIUM CHLORIDE [Concomitant]
     Active Substance: SODIUM CHLORIDE
     Dates: start: 20230629, end: 20230630

REACTIONS (36)
  - Death [Fatal]
  - Haematuria [Recovered/Resolved]
  - Pulmonary embolism [Unknown]
  - Hepatitis [Unknown]
  - Hyponatraemia [Recovered/Resolved]
  - Hypertransaminasaemia [Recovered/Resolved]
  - Hypophagia [Unknown]
  - White blood cell disorder [Unknown]
  - Haematocrit abnormal [Unknown]
  - Sinus bradycardia [Unknown]
  - Inappropriate antidiuretic hormone secretion [Unknown]
  - Urinary retention [Unknown]
  - Pericardial effusion [Unknown]
  - Platelet count decreased [Unknown]
  - Hyperhidrosis [Unknown]
  - Vomiting [Unknown]
  - Diarrhoea [Unknown]
  - Headache [Unknown]
  - Dizziness [Unknown]
  - Muscular weakness [Unknown]
  - Nausea [Unknown]
  - Dysphagia [Unknown]
  - Paraesthesia [Unknown]
  - Rhinorrhoea [Unknown]
  - Oropharyngeal pain [Unknown]
  - Cough [Unknown]
  - Dizziness [Unknown]
  - Dysgeusia [Unknown]
  - Dyspnoea [Unknown]
  - Fatigue [Unknown]
  - Oedema peripheral [Unknown]
  - Arthralgia [Unknown]
  - Blood sodium abnormal [Unknown]
  - Fall [Unknown]
  - Haemoglobin decreased [Unknown]
  - Blood sodium decreased [Unknown]

NARRATIVE: CASE EVENT DATE: 20230524
